FAERS Safety Report 7061946-1 (Version None)
Quarter: 2010Q4

REPORT INFORMATION
  Report Type: 
  Country: None (occurrence: None)
  Receive Date: 20101026
  Receipt Date: 20101022
  Transmission Date: 20110411
  Serious: Yes (Death)
  Sender: FDA-Public Use
  Company Number: GB-SHIRE-SPV1-2010-01832

PATIENT
  Age: 90 Year
  Sex: Female

DRUGS (1)
  1. XAGRID [Suspect]
     Indication: ESSENTIAL THROMBOCYTHAEMIA
     Dosage: 500 UG, UNKNOWN
     Route: 048
     Dates: start: 20100601, end: 20100920

REACTIONS (2)
  - CARDIAC FAILURE [None]
  - GASTROINTESTINAL HAEMORRHAGE [None]
